FAERS Safety Report 25571458 (Version 1)
Quarter: 2025Q3

REPORT INFORMATION
  Report Type: Report from Study
  Country: US (occurrence: US)
  Receive Date: 20250717
  Receipt Date: 20250717
  Transmission Date: 20251021
  Serious: Yes (Other)
  Sender: ABBVIE
  Company Number: US-ABBVIE-6371366

PATIENT
  Age: 72 Year
  Sex: Female
  Weight: 98 kg

DRUGS (1)
  1. RESTASIS [Suspect]
     Active Substance: CYCLOSPORINE
     Indication: Dry eye
     Dosage: STRENGTH: 0.1 MILLIGRAM/MILLILITERS?2 DROPS IN EACH EYE
     Route: 047
     Dates: start: 2016

REACTIONS (10)
  - Cataract [Recovered/Resolved]
  - Vision blurred [Recovered/Resolved]
  - Hypertension [Recovering/Resolving]
  - Aortic stenosis [Not Recovered/Not Resolved]
  - Blood cholesterol increased [Recovering/Resolving]
  - Visual impairment [Recovered/Resolved]
  - Eye pruritus [Recovered/Resolved]
  - Ephelides [Not Recovered/Not Resolved]
  - Macular degeneration [Recovering/Resolving]
  - Seasonal allergy [Recovered/Resolved]

NARRATIVE: CASE EVENT DATE: 20200101
